FAERS Safety Report 11238007 (Version 1)
Quarter: 2015Q3

REPORT INFORMATION
  Report Type: Report from Study
  Country: JP (occurrence: JP)
  Receive Date: 20150703
  Receipt Date: 20150703
  Transmission Date: 20151125
  Serious: Yes (Hospitalization, Other)
  Sender: FDA-Public Use
  Company Number: JP-009507513-1506JPN015405

PATIENT
  Age: 28 Year
  Sex: Male
  Weight: 61.8 kg

DRUGS (11)
  1. FINASTERIDE. [Suspect]
     Active Substance: FINASTERIDE
     Indication: PROPHYLAXIS
     Dosage: 1 MG, QD
     Route: 048
  2. FAMOTIDINE. [Suspect]
     Active Substance: FAMOTIDINE
     Indication: PROPHYLAXIS
     Dosage: 20 MG, BID
     Route: 048
  3. METHOTREXATE [Suspect]
     Active Substance: METHOTREXATE
     Indication: CROHN^S DISEASE
     Dosage: 6 MG
     Route: 048
  4. METHIMAZOLE. [Suspect]
     Active Substance: METHIMAZOLE
     Indication: HYPERTHYROIDISM
     Dosage: 10 MG, BID
     Route: 048
  5. PENTASA [Suspect]
     Active Substance: MESALAMINE
     Indication: CROHN^S DISEASE
     Dosage: 500 MG, TID
     Route: 048
  6. MECOBALAMIN [Suspect]
     Active Substance: METHYLCOBALAMIN
     Indication: HYPERTHYROIDISM
     Dosage: 500 MICROGRAM, BID
     Route: 048
  7. FOLIC ACID. [Suspect]
     Active Substance: FOLIC ACID
     Indication: PROPHYLAXIS
     Dosage: 5 MG, QW
     Route: 048
  8. METRONIDAZOLE. [Suspect]
     Active Substance: METRONIDAZOLE
     Indication: CROHN^S DISEASE
     Dosage: 250 MG, BID
     Route: 048
  9. STUDY DRUG (UNSPECIFIED) [Suspect]
     Active Substance: UNSPECIFIED INGREDIENT
     Indication: CROHN^S DISEASE
     Dosage: UNK
     Dates: start: 20140412, end: 20150228
  10. LEBENIN [Suspect]
     Active Substance: LACTOBACILLUS ACIDOPHILUS\STREPTOCOCCUS FAECAIS
     Indication: CROHN^S DISEASE
     Dosage: 1 G, TID
     Route: 048
  11. VEDOLIZUMAB [Suspect]
     Active Substance: VEDOLIZUMAB
     Indication: CROHN^S DISEASE
     Dosage: 300 MG
     Route: 041
     Dates: start: 20150324

REACTIONS (2)
  - Abscess intestinal [Unknown]
  - Intestinal obstruction [Recovered/Resolved]

NARRATIVE: CASE EVENT DATE: 201503
